FAERS Safety Report 16557941 (Version 1)
Quarter: 2019Q3

REPORT INFORMATION
  Report Type: Spontaneous
  Country: BE (occurrence: BE)
  Receive Date: 20190711
  Receipt Date: 20190711
  Transmission Date: 20191004
  Serious: Yes (Other)
  Sender: FDA-Public Use
  Company Number: BE-009507513-1907BEL001783

PATIENT
  Sex: Female

DRUGS (1)
  1. REMERGON [Suspect]
     Active Substance: MIRTAZAPINE
     Dosage: FIRST, 30 MG FOR 14 DAYS
     Route: 048

REACTIONS (2)
  - Tremor [Recovered/Resolved]
  - Palpitations [Recovered/Resolved]
